FAERS Safety Report 6330511-3 (Version None)
Quarter: 2009Q3

REPORT INFORMATION
  Report Type: 
  Country: None (occurrence: None)
  Receive Date: 20090827
  Receipt Date: 20090819
  Transmission Date: 20100115
  Serious: Yes (Hospitalization)
  Sender: FDA-Public Use
  Company Number: FR-ASTRAZENECA-2009CG00559

PATIENT
  Age: 75 Year
  Sex: Male
  Weight: 130 kg

DRUGS (16)
  1. CRESTOR [Suspect]
     Indication: DYSLIPIDAEMIA
     Route: 048
     Dates: start: 20090312, end: 20090316
  2. PREVISCAN [Concomitant]
     Indication: THROMBOSIS PROPHYLAXIS
     Route: 048
  3. METFORMIN HCL [Concomitant]
     Indication: TYPE 2 DIABETES MELLITUS
     Route: 048
  4. DIFFU K [Concomitant]
     Route: 048
  5. DIGOXIN [Concomitant]
     Route: 048
  6. ALLOPURINOL [Concomitant]
     Route: 048
  7. BECLOJET [Concomitant]
     Route: 007
  8. ENALAPRIL MALEATE [Concomitant]
     Indication: HYPERTENSION
     Route: 048
  9. BUMEX [Concomitant]
     Route: 048
  10. VENTOLIN [Concomitant]
     Dosage: 100 UG, TWO INHALATION X 3
     Route: 007
  11. ZOPICLONE [Concomitant]
     Route: 048
  12. BROMAZEPAM [Concomitant]
     Dosage: 6 MG, 1/4 TABLET + 1/2 TABLET
     Route: 048
  13. LACTULOSE [Concomitant]
     Route: 048
  14. AMBROXOL [Concomitant]
  15. DI-ANTALVIC [Concomitant]
     Indication: PAIN
  16. DUPHALAC [Concomitant]
     Indication: DIARRHOEA

REACTIONS (1)
  - LEUKOCYTOCLASTIC VASCULITIS [None]
